FAERS Safety Report 4468015-5 (Version None)
Quarter: 2004Q4

REPORT INFORMATION
  Report Type: 
  Country: None (occurrence: None)
  Receive Date: 20041007
  Receipt Date: 20040929
  Transmission Date: 20050328
  Serious: Yes (Hospitalization)
  Sender: FDA-Public Use
  Company Number: 200419812GDDC

PATIENT
  Age: 17 Day
  Sex: Female

DRUGS (2)
  1. FUROSEMIDE [Suspect]
     Dosage: DOSE: UNK
  2. ANTIBIOTICS [Concomitant]
     Dosage: DOSE: UNK

REACTIONS (9)
  - ABDOMINAL DISTENSION [None]
  - HYDRONEPHROSIS [None]
  - HYPERCALCIURIA [None]
  - JAUNDICE NEONATAL [None]
  - NEONATAL DISORDER [None]
  - NEPHROLITHIASIS [None]
  - PELVI-URETERIC OBSTRUCTION [None]
  - URINE CALCIUM/CREATININE RATIO INCREASED [None]
  - URINOMA [None]
